FAERS Safety Report 8759264 (Version 5)
Quarter: 2013Q2

REPORT INFORMATION
  Report Type: Spontaneous
  Country: US (occurrence: US)
  Receive Date: 20120829
  Receipt Date: 20130528
  Transmission Date: 20140414
  Serious: Yes (Disabling, Other)
  Sender: FDA-Public Use
  Company Number: US-009507513-1208USA009882

PATIENT
  Sex: Female
  Weight: 86.17 kg

DRUGS (4)
  1. FOSAMAX [Suspect]
     Indication: OSTEOPOROSIS
     Dosage: UNK UNK, QD
     Route: 048
     Dates: start: 1996
  2. FOSAMAX [Suspect]
     Indication: OSTEOPENIA
     Dosage: UNK, QW
     Route: 048
     Dates: end: 2007
  3. FOSAMAX [Suspect]
     Indication: OSTEOPOROSIS
     Route: 048
  4. FOSAMAX [Suspect]
     Indication: OSTEOPENIA

REACTIONS (22)
  - Femur fracture [Not Recovered/Not Resolved]
  - Open reduction of fracture [Unknown]
  - Intramedullary rod insertion [Unknown]
  - Low turnover osteopathy [Not Recovered/Not Resolved]
  - Fracture nonunion [Unknown]
  - Hypertension [Unknown]
  - Medical device removal [Unknown]
  - Device breakage [Unknown]
  - Spondylolisthesis [Unknown]
  - Spinal osteoarthritis [Unknown]
  - Medical device complication [Unknown]
  - Muscle disorder [Unknown]
  - Bone callus excessive [Unknown]
  - Pain in extremity [Unknown]
  - Bone pain [Unknown]
  - Back pain [Not Recovered/Not Resolved]
  - Weight increased [Unknown]
  - Limb injury [Unknown]
  - Blood cholesterol increased [Unknown]
  - Blood triglycerides increased [Unknown]
  - Sinusitis [Unknown]
  - Sinusitis [Unknown]
